FAERS Safety Report 19261895 (Version 4)
Quarter: 2021Q4

REPORT INFORMATION
  Report Type: Spontaneous
  Country: US (occurrence: US)
  Receive Date: 20210515
  Receipt Date: 20211028
  Transmission Date: 20220303
  Serious: Yes (Death, Life-Threatening, Hospitalization)
  Sender: FDA-Public Use
  Company Number: US-TEVA-2021-US-1910108

PATIENT
  Age: 32 Year
  Sex: Male

DRUGS (4)
  1. COLCHICINE [Suspect]
     Active Substance: COLCHICINE
     Indication: Overdose
     Dosage: 32.4MG (0.39 MG/KG) AND 54MG (0.65 MG/KG)
     Route: 048
  2. COLCHICINE [Suspect]
     Active Substance: COLCHICINE
     Indication: Chest pain
  3. COLCHICINE [Suspect]
     Active Substance: COLCHICINE
     Indication: Myocarditis
  4. COLCHICINE [Suspect]
     Active Substance: COLCHICINE
     Indication: Pericarditis

REACTIONS (20)
  - Multiple organ dysfunction syndrome [Fatal]
  - Pancytopenia [Unknown]
  - Neutropenia [Unknown]
  - Disseminated intravascular coagulation [Unknown]
  - Mouth haemorrhage [Unknown]
  - Catheter site haemorrhage [Unknown]
  - Arterial haemorrhage [Unknown]
  - Acute hepatic failure [Recovered/Resolved]
  - Acute kidney injury [Unknown]
  - Rhabdomyolysis [Unknown]
  - Cardiovascular disorder [Unknown]
  - Troponin increased [Unknown]
  - Lactic acidosis [Unknown]
  - Hyperkalaemia [Unknown]
  - Hyperphosphataemia [Unknown]
  - Hypocalcaemia [Unknown]
  - Hypomagnesaemia [Unknown]
  - Hypoglycaemia [Unknown]
  - Intentional overdose [Unknown]
  - Toxicity to various agents [Unknown]
